FAERS Safety Report 9618839 (Version 1)
Quarter: 2013Q4

REPORT INFORMATION
  Report Type: Spontaneous
  Country: US (occurrence: US)
  Receive Date: 20131014
  Receipt Date: 20131014
  Transmission Date: 20140711
  Serious: No
  Sender: FDA-Public Use
  Company Number: US-009507513-1309USA012367

PATIENT
  Age: 25 Year
  Sex: 0
  Weight: 87.53 kg

DRUGS (1)
  1. IMPLANON [Suspect]
     Indication: CONTRACEPTION
     Dosage: UNK
     Route: 059
     Dates: start: 20100914

REACTIONS (2)
  - Expired drug administered [Unknown]
  - Incorrect drug administration duration [Unknown]
